FAERS Safety Report 13645722 (Version 23)
Quarter: 2019Q3

REPORT INFORMATION
  Report Type: Report from Study
  Country: ID (occurrence: ID)
  Receive Date: 20170613
  Receipt Date: 20190917
  Transmission Date: 20191004
  Serious: Yes (Hospitalization)
  Sender: FDA-Public Use
  Company Number: ID-ROCHE-1945545

PATIENT
  Age: 55 Year
  Sex: Female
  Weight: 57 kg

DRUGS (10)
  1. LANSOPRAZOLE. [Concomitant]
     Active Substance: LANSOPRAZOLE
     Route: 065
     Dates: start: 2017, end: 20170613
  2. FOLIC ACID. [Concomitant]
     Active Substance: FOLIC ACID
     Route: 065
     Dates: start: 20170517, end: 20170522
  3. TRASTUZUMAB EMTANSINE [Suspect]
     Active Substance: ADO-TRASTUZUMAB EMTANSINE
     Indication: HER-2 POSITIVE BREAST CANCER
     Dosage: MOST RECENT DOSE (192 MG) OF TRASTUZUMAB EMTANSINE PRIOR TO SAE- 17/MAY/2017
     Route: 042
     Dates: start: 20170227
  4. TRASTUZUMAB EMTANSINE [Suspect]
     Active Substance: ADO-TRASTUZUMAB EMTANSINE
     Route: 042
     Dates: start: 20170628
  5. PHENOLPHTHALEIN [Concomitant]
     Active Substance: PHENOLPHTHALEIN
     Route: 065
     Dates: start: 2017, end: 20170613
  6. ULTRACET [Concomitant]
     Active Substance: ACETAMINOPHEN\TRAMADOL HYDROCHLORIDE
     Dosage: 97.5 TRAMADOL
     Route: 065
     Dates: start: 20170517, end: 20170522
  7. FOLIC ACID. [Concomitant]
     Active Substance: FOLIC ACID
     Dosage: 2 MCG
     Route: 065
     Dates: start: 20170517, end: 20170522
  8. RIVAROXABAN [Concomitant]
     Active Substance: RIVAROXABAN
     Route: 065
     Dates: start: 20170509, end: 20170610
  9. RIVAROXABAN [Concomitant]
     Active Substance: RIVAROXABAN
     Route: 065
     Dates: start: 20170509, end: 20170610
  10. MEGESTROL ACETATE. [Concomitant]
     Active Substance: MEGESTROL ACETATE
     Route: 065
     Dates: start: 2017, end: 20170526

REACTIONS (2)
  - Abdominal pain [Recovered/Resolved]
  - Pneumonia [Recovered/Resolved with Sequelae]

NARRATIVE: CASE EVENT DATE: 20170521
